FAERS Safety Report 12124220 (Version 1)
Quarter: 2016Q1

REPORT INFORMATION
  Report Type: Spontaneous
  Country: US (occurrence: None)
  Receive Date: 20160226
  Receipt Date: 20160226
  Transmission Date: 20160526
  Serious: Yes (Hospitalization, Other)
  Sender: FDA-Public Use
  Company Number: None

PATIENT
  Age: 86 Year
  Sex: Female
  Weight: 58.97 kg

DRUGS (9)
  1. LEVOFLOXACIN. [Concomitant]
     Active Substance: LEVOFLOXACIN
  2. BIOTIN [Concomitant]
     Active Substance: BIOTIN
  3. PRESERVISION AREDS 2 WITH LUTEIN [Concomitant]
  4. PROLIA [Suspect]
     Active Substance: DENOSUMAB
     Indication: OSTEOPOROSIS
     Dosage: 2 INJECTIONS YEARLY
  5. CITALOPRAM [Concomitant]
     Active Substance: CITALOPRAM HYDROBROMIDE
  6. DOXEPIN [Concomitant]
     Active Substance: DOXEPIN
  7. EYEGLASSES [Concomitant]
  8. VITAMIN D3 [Concomitant]
     Active Substance: CHOLECALCIFEROL
  9. HEARING AIDS [Concomitant]

REACTIONS (2)
  - Osteonecrosis [None]
  - Pain [None]

NARRATIVE: CASE EVENT DATE: 20151110
